FAERS Safety Report 23276499 (Version 1)
Quarter: 2023Q4

REPORT INFORMATION
  Report Type: Spontaneous
  Country: CN (occurrence: CN)
  Receive Date: 20231208
  Receipt Date: 20231208
  Transmission Date: 20240110
  Serious: Yes (Other)
  Sender: FDA-Public Use
  Company Number: CN-BAYER-2023A175639

PATIENT
  Age: 34 Year
  Sex: Female
  Weight: 60 kg

DRUGS (2)
  1. YAZ [Suspect]
     Active Substance: DROSPIRENONE\ETHINYL ESTRADIOL
     Indication: Polycystic ovarian syndrome
     Dosage: 1 DF, QD
     Route: 048
     Dates: start: 20231029, end: 20231127
  2. YAZ [Suspect]
     Active Substance: DROSPIRENONE\ETHINYL ESTRADIOL
     Indication: Menstrual cycle management

REACTIONS (9)
  - Drug-induced liver injury [Recovering/Resolving]
  - Hyperprolactinaemia [Recovering/Resolving]
  - Hepatic function abnormal [Recovering/Resolving]
  - Chest discomfort [Recovering/Resolving]
  - Chest pain [Recovering/Resolving]
  - Headache [Recovering/Resolving]
  - Eye pain [Recovering/Resolving]
  - Dizziness [Recovering/Resolving]
  - Off label use [None]

NARRATIVE: CASE EVENT DATE: 20231029
